FAERS Safety Report 23587445 (Version 1)
Quarter: 2024Q1

REPORT INFORMATION
  Report Type: Spontaneous
  Country: TW (occurrence: TW)
  Receive Date: 20240301
  Receipt Date: 20240301
  Transmission Date: 20240410
  Serious: Yes (Other)
  Sender: FDA-Public Use
  Company Number: TW-Eisai-EC-2024-159855

PATIENT
  Age: 67 Year
  Sex: Female
  Weight: 44.4 kg

DRUGS (2)
  1. LENVATINIB [Suspect]
     Active Substance: LENVATINIB
     Indication: Endometrial cancer recurrent
     Route: 048
     Dates: start: 2023
  2. PEMBROLIZUMAB [Suspect]
     Active Substance: PEMBROLIZUMAB
     Indication: Endometrial cancer recurrent
     Dosage: FREQUENCY UNKNOWN.
     Route: 042
     Dates: start: 2023

REACTIONS (2)
  - Colitis [Unknown]
  - Tachycardia [Unknown]
